FAERS Safety Report 8776093 (Version 2)
Quarter: 2012Q4

REPORT INFORMATION
  Report Type: 
  Country: RU (occurrence: RU)
  Receive Date: 20120910
  Receipt Date: 20120910
  Transmission Date: 20130627
  Serious: Yes (Other)
  Sender: FDA-Public Use
  Company Number: RU-VIIV HEALTHCARE LIMITED-A0991188A

PATIENT
  Age: 0 Year
  Sex: Female
  Weight: 2.5 kg

DRUGS (3)
  1. ZIDOVUDINE [Suspect]
     Indication: ANTIVIRAL TREATMENT
     Dosage: 300MG per day
     Route: 064
     Dates: start: 20101120
  2. PREZISTA [Suspect]
     Indication: ANTIVIRAL TREATMENT
     Route: 064
     Dates: start: 20101120
  3. NORVIR [Suspect]
     Indication: ANTIVIRAL TREATMENT
     Dosage: 200MG per day
     Route: 064
     Dates: start: 20101120

REACTIONS (3)
  - Premature baby [Unknown]
  - Foetal growth restriction [Unknown]
  - Foetal exposure during pregnancy [Unknown]
